FAERS Safety Report 7894407-8 (Version None)
Quarter: 2011Q4

REPORT INFORMATION
  Report Type: 
  Country: None (occurrence: None)
  Receive Date: 20111104
  Receipt Date: 20111028
  Transmission Date: 20120403
  Serious: Yes (Hospitalization)
  Sender: FDA-Public Use
  Company Number: GB-ASTRAZENECA-2011SE65281

PATIENT
  Age: 75 Year
  Sex: Female

DRUGS (1)
  1. ATENOLOL [Suspect]
     Indication: HYPERTENSION
     Route: 048
     Dates: start: 20110710, end: 20110714

REACTIONS (7)
  - PARAESTHESIA [None]
  - ASTHENIA [None]
  - PANIC ATTACK [None]
  - VISION BLURRED [None]
  - DECREASED APPETITE [None]
  - SENSORY LOSS [None]
  - JOINT SWELLING [None]
